FAERS Safety Report 5168261-1 (Version None)
Quarter: 2006Q4

REPORT INFORMATION
  Report Type: 
  Country: None (occurrence: None)
  Receive Date: 20061201
  Receipt Date: 20061122
  Transmission Date: 20070319
  Serious: Yes (Hospitalization)
  Sender: FDA-Public Use
  Company Number: E2020-00310-SPO-JP

PATIENT
  Age: 84 Year
  Sex: Female
  Weight: 45 kg

DRUGS (11)
  1. ARICEPT [Suspect]
     Indication: DEMENTIA ALZHEIMER'S TYPE
     Dosage: 3 MG, 1 IN 1 D, ORAL; SEE IMAGE
     Route: 048
     Dates: start: 20051228, end: 20060109
  2. ARICEPT [Suspect]
     Indication: DEMENTIA ALZHEIMER'S TYPE
     Dosage: 3 MG, 1 IN 1 D, ORAL; SEE IMAGE
     Route: 048
     Dates: start: 20060110, end: 20060206
  3. ARICEPT [Suspect]
     Indication: DEMENTIA ALZHEIMER'S TYPE
     Dosage: 3 MG, 1 IN 1 D, ORAL; SEE IMAGE
     Route: 048
     Dates: start: 20060207, end: 20060706
  4. DIOVAN [Suspect]
     Indication: HYPERTENSION
     Dosage: 40 MG, 1 IN 1 D, ORAL
     Route: 048
     Dates: start: 20050607, end: 20060901
  5. NEUQUINON (UBIDECARENONE) [Suspect]
     Indication: CARDIAC FAILURE CONGESTIVE
     Dosage: 30 MG, 3 IN 1 D, ORAL
     Route: 048
     Dates: start: 19980402, end: 20060901
  6. DIART (AZOSEMIDE) [Suspect]
     Indication: OEDEMA
     Dosage: 60 MG, 1 IN 1 D, ORAL
     Route: 048
     Dates: start: 20050802, end: 20060901
  7. MAGLAX (MAGNESIUM OXIDE) [Suspect]
     Indication: CONSTIPATION
     Dosage: 990 MG, 3 IN 1 D, ORAL
     Route: 048
     Dates: start: 20000215, end: 20060901
  8. DALIC (DOMPERIDONE) [Suspect]
     Indication: GASTRITIS
     Dosage: 30 MG, 3 IN 1 D, ORAL
     Route: 048
     Dates: start: 20050607, end: 20060901
  9. FOIPAN (CAMOSTAT MESILATE) [Suspect]
     Indication: PANCREATITIS
     Dosage: 8 DOSAGE FORMS, 2 IN 1 D, ORAL; SEE IMAGE
     Route: 048
     Dates: start: 20041202, end: 20060306
  10. FOIPAN (CAMOSTAT MESILATE) [Suspect]
     Indication: PANCREATITIS
     Dosage: 8 DOSAGE FORMS, 2 IN 1 D, ORAL; SEE IMAGE
     Route: 048
     Dates: end: 20060901
  11. FOIPAN (CAMOSTAT MESILATE) [Suspect]
     Indication: PANCREATITIS
     Dosage: 8 DOSAGE FORMS, 2 IN 1 D, ORAL; SEE IMAGE
     Route: 048
     Dates: start: 20060307

REACTIONS (11)
  - CONSTIPATION [None]
  - CONVULSION [None]
  - DEMENTIA ALZHEIMER'S TYPE [None]
  - FEELING ABNORMAL [None]
  - GASTRITIS [None]
  - HYPERTENSION [None]
  - LOSS OF CONSCIOUSNESS [None]
  - OEDEMA [None]
  - PANCREATITIS [None]
  - SHOCK [None]
  - SYNCOPE [None]
